FAERS Safety Report 6074770-3 (Version None)
Quarter: 2009Q1

REPORT INFORMATION
  Report Type: 
  Country: None (occurrence: None)
  Receive Date: 20090210
  Receipt Date: 20090210
  Transmission Date: 20090719
  Serious: Yes (Other)
  Sender: FDA-Public Use
  Company Number: None

PATIENT
  Sex: Male
  Weight: 68.0396 kg

DRUGS (1)
  1. RISPERIDONE [Suspect]
     Indication: SCHIZOAFFECTIVE DISORDER
     Dosage: 2 MG ONE/DAY PO
     Route: 048
     Dates: start: 20080801, end: 20080802

REACTIONS (3)
  - FEAR [None]
  - PALPITATIONS [None]
  - PRODUCT QUALITY ISSUE [None]
